FAERS Safety Report 21439859 (Version 1)
Quarter: 2022Q4

REPORT INFORMATION
  Report Type: Report from Study
  Country: NL (occurrence: NL)
  Receive Date: 20221011
  Receipt Date: 20221011
  Transmission Date: 20230113
  Serious: Yes (Death)
  Sender: FDA-Public Use
  Company Number: NL-BAYER-2022A131494

PATIENT
  Age: 64 Year
  Sex: Female

DRUGS (1)
  1. ADEMPAS [Suspect]
     Active Substance: RIOCIGUAT
     Dosage: 0.5 MG, BID
     Dates: start: 20220109, end: 20220911

REACTIONS (2)
  - Death [Fatal]
  - Inappropriate schedule of product administration [None]
